FAERS Safety Report 16200834 (Version 1)
Quarter: 2019Q2

REPORT INFORMATION
  Report Type: Spontaneous
  Country: US (occurrence: US)
  Receive Date: 20190416
  Receipt Date: 20190416
  Transmission Date: 20190711
  Serious: No
  Sender: FDA-Public Use
  Company Number: US-BION-007357

PATIENT
  Age: 61 Year
  Sex: Male
  Weight: 150 kg

DRUGS (1)
  1. ALEVE [Suspect]
     Active Substance: NAPROXEN SODIUM
     Indication: PAIN
     Dosage: 2 PER DAY
     Route: 048
     Dates: start: 201807, end: 201807

REACTIONS (5)
  - Poor quality product administered [Not Recovered/Not Resolved]
  - Product colour issue [Unknown]
  - Product taste abnormal [Unknown]
  - Product packaging issue [Unknown]
  - Product physical consistency issue [Unknown]

NARRATIVE: CASE EVENT DATE: 201807
